FAERS Safety Report 23686104 (Version 1)
Quarter: 2024Q1

REPORT INFORMATION
  Report Type: Spontaneous
  Country: FR (occurrence: FR)
  Receive Date: 20240329
  Receipt Date: 20240329
  Transmission Date: 20240409
  Serious: Yes (Hospitalization)
  Sender: FDA-Public Use
  Company Number: FR-SUN PHARMACEUTICAL INDUSTRIES LTD-2024RR-439372

PATIENT
  Age: 57 Year
  Sex: Male

DRUGS (12)
  1. VENLAFAXINE [Suspect]
     Active Substance: VENLAFAXINE HYDROCHLORIDE
     Indication: Depression
     Dosage: 75 MILLIGRAM, IN TOTAL
     Route: 048
     Dates: start: 20181115
  2. ACETAMINOPHEN [Suspect]
     Active Substance: ACETAMINOPHEN
     Indication: Pain
     Dosage: 1000 MILLIGRAM, IN TOTAL
     Route: 040
     Dates: start: 20231130, end: 20231130
  3. KETOPROFEN [Suspect]
     Active Substance: KETOPROFEN
     Indication: Pain
     Dosage: 100 MILLIGRAM, IN TOTAL
     Route: 040
     Dates: start: 20231130, end: 20231130
  4. KETAMINE [Suspect]
     Active Substance: KETAMINE
     Indication: Anaesthesia
     Dosage: 30 MILLIGRAM, IN TOTAL
     Route: 040
     Dates: start: 20231130, end: 20231130
  5. SUFENTANIL [Suspect]
     Active Substance: SUFENTANIL
     Indication: Anaesthesia
     Dosage: 20 MICROGRAM, IN TOTAL
     Route: 040
     Dates: start: 20231130, end: 20231130
  6. BENSERAZIDE HYDROCHLORIDE\LEVODOPA [Suspect]
     Active Substance: BENSERAZIDE HYDROCHLORIDE\LEVODOPA
     Indication: Parkinson^s disease
     Dosage: 250 MILLIGRAM, TID
     Route: 048
     Dates: start: 20180615
  7. TRAMADOL HYDROCHLORIDE [Suspect]
     Active Substance: TRAMADOL HYDROCHLORIDE
     Indication: Pain
     Dosage: 100 MILLIGRAM, IN TOTAL
     Route: 040
     Dates: start: 20231130, end: 20231130
  8. CEFAZOLIN SODIUM [Suspect]
     Active Substance: CEFAZOLIN SODIUM
     Indication: Antibiotic prophylaxis
     Dosage: 2 GRAM, IN TOTAL
     Route: 040
     Dates: start: 20231130, end: 20231130
  9. DEXAMETHASONE [Suspect]
     Active Substance: DEXAMETHASONE
     Indication: Anaesthesia
     Dosage: 8 MILLIGRAM, 200MG/20ML, IN TOTAL
     Route: 040
     Dates: start: 20231130, end: 20231130
  10. OXYCODONE [Suspect]
     Active Substance: OXYCODONE\OXYCODONE HYDROCHLORIDE
     Indication: Pain
     Dosage: 6 MILLIGRAM, IN TOTAL
     Route: 040
     Dates: start: 20231130, end: 20231130
  11. CISATRACURIUM [Suspect]
     Active Substance: CISATRACURIUM
     Indication: Pain
     Dosage: 8 MILLIGRAM, IN TOTAL
     Route: 040
     Dates: start: 20231130, end: 20231130
  12. PROPOFOL [Suspect]
     Active Substance: PROPOFOL
     Indication: Anaesthesia
     Dosage: 200MG/20ML, IN TOTAL
     Route: 040
     Dates: start: 20231130, end: 20231130

REACTIONS (2)
  - Confusion postoperative [Recovering/Resolving]
  - Postoperative delirium [Recovering/Resolving]

NARRATIVE: CASE EVENT DATE: 20231201
